FAERS Safety Report 6244726-6 (Version None)
Quarter: 2009Q2

REPORT INFORMATION
  Report Type: 
  Country: None (occurrence: None)
  Receive Date: 20090623
  Receipt Date: 20090623
  Transmission Date: 20091009
  Serious: Yes (Life-Threatening)
  Sender: FDA-Public Use
  Company Number: None

PATIENT
  Sex: Male
  Weight: 84.1 kg

DRUGS (2)
  1. CARVEDILOL [Suspect]
     Indication: ARRHYTHMIA
     Dosage: 6.25 MG 2X 7-10 DAYS
     Dates: start: 20090509
  2. CARVEDILOL [Suspect]
     Indication: HYPERTENSION
     Dosage: 6.25 MG 2X 7-10 DAYS
     Dates: start: 20090509

REACTIONS (3)
  - ARRHYTHMIA [None]
  - HYPERTENSION [None]
  - PRODUCT SUBSTITUTION ISSUE [None]
